FAERS Safety Report 4417610-8 (Version None)
Quarter: 2004Q2

REPORT INFORMATION
  Report Type: 
  Country: None (occurrence: None)
  Receive Date: 20040625
  Receipt Date: 20040519
  Transmission Date: 20050107
  Serious: No
  Sender: FDA-Public Use
  Company Number: 206650

PATIENT
  Age: 75 Year
  Sex: Male

DRUGS (2)
  1. AVASTIN [Suspect]
     Dosage: 380 MG, INTRAVENOUS
     Route: 042
     Dates: start: 20040101
  2. CAMPTOSAR [Concomitant]

REACTIONS (2)
  - ASTHENIA [None]
  - HYPOAESTHESIA [None]
